FAERS Safety Report 21250621 (Version 6)
Quarter: 2023Q2

REPORT INFORMATION
  Report Type: Report from Study
  Country: US (occurrence: US)
  Receive Date: 20220824
  Receipt Date: 20230427
  Transmission Date: 20230721
  Serious: Yes (Other)
  Sender: FDA-Public Use
  Company Number: US-ABBVIE-22K-163-4479189-00

PATIENT
  Sex: Male

DRUGS (5)
  1. HUMIRA [Suspect]
     Active Substance: ADALIMUMAB
     Indication: Hidradenitis
     Dosage: CITRATE FREE,  FORM STRENGTH: 40 MILLIGRAM
     Route: 058
     Dates: start: 20220125
  2. HUMIRA [Suspect]
     Active Substance: ADALIMUMAB
     Dosage: CITRATE FREE,  FORM STRENGTH: 40 MILLIGRAM
     Route: 058
     Dates: start: 20220125
  3. HUMIRA [Suspect]
     Active Substance: ADALIMUMAB
     Dosage: CITRATE FREE, FORM STRENGTH: 40 MILLIGRAM
     Route: 058
  4. HUMIRA [Suspect]
     Active Substance: ADALIMUMAB
     Dosage: CITRATE FREE FORM STRENGTH: 40 MG
     Route: 058
     Dates: start: 20200101
  5. HUMIRA [Suspect]
     Active Substance: ADALIMUMAB
     Dosage: CITRATE FREE FORM STRENGTH: 40 MG

REACTIONS (15)
  - Urethral obstruction [Unknown]
  - Nerve injury [Not Recovered/Not Resolved]
  - Kidney infection [Recovered/Resolved]
  - Illness [Recovered/Resolved]
  - Hidradenitis [Not Recovered/Not Resolved]
  - Cystitis [Recovered/Resolved]
  - Arthralgia [Not Recovered/Not Resolved]
  - Neuropathy peripheral [Not Recovered/Not Resolved]
  - Back pain [Not Recovered/Not Resolved]
  - Ear infection [Unknown]
  - Loss of consciousness [Not Recovered/Not Resolved]
  - Blood potassium decreased [Not Recovered/Not Resolved]
  - Pain [Not Recovered/Not Resolved]
  - Gastroenteritis viral [Recovered/Resolved]
  - Drug ineffective [Unknown]

NARRATIVE: CASE EVENT DATE: 20220101
